FAERS Safety Report 20847803 (Version 2)
Quarter: 2022Q3

REPORT INFORMATION
  Report Type: Report from Study
  Country: US (occurrence: US)
  Receive Date: 20220519
  Receipt Date: 20220715
  Transmission Date: 20221027
  Serious: Yes (Other)
  Sender: FDA-Public Use
  Company Number: US-EXELIXIS-CABO-22048821

PATIENT
  Sex: Male
  Weight: 118.8 kg

DRUGS (3)
  1. CABOMETYX [Suspect]
     Active Substance: CABOZANTINIB S-MALATE
     Indication: Renal cancer
     Dosage: 60 MG, QD
     Route: 048
     Dates: start: 20210621
  2. ELIQUIS [Suspect]
     Active Substance: APIXABAN
     Indication: Renal cancer
     Dosage: UNK
  3. LIALDA [Concomitant]
     Active Substance: MESALAMINE

REACTIONS (3)
  - Coronary artery disease [Unknown]
  - Feeling abnormal [Unknown]
  - Adverse event [Unknown]
